FAERS Safety Report 9500203 (Version 1)
Quarter: 2013Q3

REPORT INFORMATION
  Report Type: Report from Study
  Country: US (occurrence: US)
  Receive Date: 20130905
  Receipt Date: 20130905
  Transmission Date: 20140515
  Serious: Yes (Hospitalization)
  Sender: FDA-Public Use
  Company Number: US-ABBOTT-13P-163-1141285-00

PATIENT
  Age: 89 Year
  Sex: Female
  Weight: 50.85 kg

DRUGS (5)
  1. HUMIRA [Suspect]
     Indication: RHEUMATOID ARTHRITIS
     Dates: start: 20130411, end: 20130704
  2. HUMIRA [Suspect]
     Dates: start: 20130723, end: 20130723
  3. HUMIRA [Suspect]
     Dates: start: 20130815
  4. METHOTREXATE [Concomitant]
     Indication: PRODUCT USED FOR UNKNOWN INDICATION
  5. PREDNISONE [Concomitant]
     Indication: PRODUCT USED FOR UNKNOWN INDICATION

REACTIONS (6)
  - Pyrexia [Unknown]
  - Urinary tract infection [Unknown]
  - Cough [Not Recovered/Not Resolved]
  - Pneumonia [Unknown]
  - Chest pain [Recovered/Resolved]
  - Bronchitis [Unknown]
